FAERS Safety Report 19305977 (Version 2)
Quarter: 2021Q3

REPORT INFORMATION
  Report Type: Spontaneous
  Country: CA (occurrence: CA)
  Receive Date: 20210526
  Receipt Date: 20210714
  Transmission Date: 20211014
  Serious: No
  Sender: FDA-Public Use
  Company Number: CA-KALEO, INC.-2021KL000059

PATIENT
  Age: 69 Year
  Sex: Female

DRUGS (2)
  1. ALLERJECT 0.3MG [Suspect]
     Active Substance: EPINEPHRINE
     Dates: start: 2021, end: 2021
  2. ALLERJECT 0.3MG [Suspect]
     Active Substance: EPINEPHRINE
     Indication: ANAPHYLACTIC REACTION
     Dates: start: 2021

REACTIONS (5)
  - Incorrect dose administered by device [Not Recovered/Not Resolved]
  - Device deployment issue [Recovered/Resolved]
  - Therapeutic response delayed [Recovered/Resolved]
  - Tremor [Recovered/Resolved]
  - Drug effect less than expected [Recovered/Resolved]

NARRATIVE: CASE EVENT DATE: 2021
